FAERS Safety Report 4304450-3 (Version None)
Quarter: 2004Q1

REPORT INFORMATION
  Report Type: 
  Country: None (occurrence: None)
  Receive Date: 20040224
  Receipt Date: 20040211
  Transmission Date: 20041129
  Serious: Yes (Other)
  Sender: FDA-Public Use
  Company Number: A-CH2004-04210

PATIENT
  Age: 46 Year
  Sex: Female
  Weight: 80 kg

DRUGS (7)
  1. TRACLEER [Suspect]
     Indication: PULMONARY HYPERTENSION
     Dosage: 125 MG, OD, ORAL;62.5 MG, BID, ORAL; 125 MG, OD, ORAL
     Route: 048
     Dates: start: 20031004, end: 20031120
  2. TRACLEER [Suspect]
     Indication: PULMONARY HYPERTENSION
     Dosage: 125 MG, OD, ORAL;62.5 MG, BID, ORAL; 125 MG, OD, ORAL
     Route: 048
     Dates: start: 20031121, end: 20031218
  3. TRACLEER [Suspect]
     Indication: PULMONARY HYPERTENSION
     Dosage: 125 MG, OD, ORAL;62.5 MG, BID, ORAL; 125 MG, OD, ORAL
     Route: 048
     Dates: start: 20031231, end: 20040108
  4. HYDROCHLOROTHIAZIDE [Concomitant]
  5. ARELIX (PIRETANIDE) [Concomitant]
  6. LEVOTHYROXINE SODIUM [Concomitant]
  7. MARCUMAR [Concomitant]

REACTIONS (3)
  - ALANINE AMINOTRANSFERASE INCREASED [None]
  - ASPARTATE AMINOTRANSFERASE INCREASED [None]
  - BLOOD ALKALINE PHOSPHATASE INCREASED [None]
